FAERS Safety Report 21910241 (Version 1)
Quarter: 2023Q1

REPORT INFORMATION
  Report Type: Spontaneous
  Country: US (occurrence: US)
  Receive Date: 20230125
  Receipt Date: 20230125
  Transmission Date: 20230417
  Serious: No
  Sender: FDA-Public Use
  Company Number: US-ALLERGAN-2210349US

PATIENT
  Sex: Male

DRUGS (4)
  1. BOTOX [Suspect]
     Active Substance: ONABOTULINUMTOXINA
     Indication: Product used for unknown indication
     Dosage: UNK UNK, SINGLE
  2. TERIFLUNOMIDE [Suspect]
     Active Substance: TERIFLUNOMIDE
     Indication: Multiple sclerosis
  3. RITALIN [Concomitant]
     Active Substance: METHYLPHENIDATE HYDROCHLORIDE
  4. ADDERALL [Concomitant]
     Active Substance: AMPHETAMINE ASPARTATE\AMPHETAMINE SULFATE\DEXTROAMPHETAMINE SACCHARATE\DEXTROAMPHETAMINE SULFATE

REACTIONS (17)
  - Nephrolithiasis [Unknown]
  - White blood cell disorder [Unknown]
  - Haemorrhoids [Unknown]
  - Micturition disorder [Unknown]
  - Memory impairment [Unknown]
  - Condition aggravated [Unknown]
  - Pain [Unknown]
  - Renal pain [Unknown]
  - Nasopharyngitis [Unknown]
  - Micturition urgency [Unknown]
  - Pollakiuria [Unknown]
  - Headache [Unknown]
  - Nausea [Unknown]
  - Myalgia [Unknown]
  - Urinary incontinence [Unknown]
  - Malaise [Unknown]
  - Pyrexia [Unknown]
